FAERS Safety Report 4674568-4 (Version None)
Quarter: 2005Q2

REPORT INFORMATION
  Report Type: 
  Country: None (occurrence: None)
  Receive Date: 20050524
  Receipt Date: 20050506
  Transmission Date: 20051028
  Serious: Yes (Hospitalization, Disabling, Other)
  Sender: FDA-Public Use
  Company Number: USA050290369

PATIENT
  Sex: Female

DRUGS (2)
  1. EVISTA [Suspect]
     Indication: OSTEOPOROSIS
  2. CALCIUM GLUCONATE [Concomitant]

REACTIONS (11)
  - AMNESIA [None]
  - ARTHRALGIA [None]
  - BUTTOCK PAIN [None]
  - CEREBROVASCULAR ACCIDENT [None]
  - HYPOAESTHESIA [None]
  - NERVE COMPRESSION [None]
  - PAIN IN EXTREMITY [None]
  - READING DISORDER [None]
  - SLEEP DISORDER [None]
  - SPEECH DISORDER [None]
  - TRANSIENT ISCHAEMIC ATTACK [None]
